FAERS Safety Report 8482573-5 (Version None)
Quarter: 2012Q3

REPORT INFORMATION
  Report Type: 
  Country: None (occurrence: None)
  Receive Date: 20120702
  Receipt Date: 20120626
  Transmission Date: 20120928
  Serious: Yes (Hospitalization)
  Sender: FDA-Public Use
  Company Number: US-MERCK-1203USA00412

PATIENT
  Age: 80 Year
  Sex: Female

DRUGS (2)
  1. EVISTA [Concomitant]
     Indication: OSTEOPOROSIS
     Route: 065
  2. FOSAMAX [Suspect]
     Indication: OSTEOPOROSIS
     Route: 048
     Dates: start: 19960101, end: 20100927

REACTIONS (14)
  - AORTIC DISORDER [None]
  - HYPERLIPIDAEMIA [None]
  - GRAVITATIONAL OEDEMA [None]
  - PRESYNCOPE [None]
  - DEMENTIA ALZHEIMER'S TYPE [None]
  - DEPENDENT RUBOR [None]
  - FEMUR FRACTURE [None]
  - ANAEMIA [None]
  - SPINAL COMPRESSION FRACTURE [None]
  - HYPERTENSION [None]
  - DENTAL CARIES [None]
  - BLOOD PRESSURE DECREASED [None]
  - SINUS DISORDER [None]
  - HYPOTHYROIDISM [None]
